FAERS Safety Report 5215924-5 (Version None)
Quarter: 2007Q1

REPORT INFORMATION
  Report Type: 
  Country: None (occurrence: None)
  Receive Date: 20070123
  Receipt Date: 20070112
  Transmission Date: 20070707
  Serious: Yes (Hospitalization)
  Sender: FDA-Public Use
  Company Number: US-ELI_LILLY_AND_COMPANY-US200701002917

PATIENT
  Sex: Female

DRUGS (1)
  1. FORTEO [Suspect]
     Dates: start: 20040101

REACTIONS (5)
  - ARTHRALGIA [None]
  - ARTHRITIS [None]
  - FALL [None]
  - HAEMORRHAGE [None]
  - LOWER LIMB FRACTURE [None]
